FAERS Safety Report 9851301 (Version 1)
Quarter: 2014Q1

REPORT INFORMATION
  Report Type: Report from Study
  Country: US (occurrence: US)
  Receive Date: 20140129
  Receipt Date: 20140129
  Transmission Date: 20141002
  Serious: Yes (Hospitalization, Other)
  Sender: FDA-Public Use
  Company Number: US-ROCHE-1337810

PATIENT
  Age: 16 Year
  Sex: Male
  Weight: 53 kg

DRUGS (8)
  1. NUTROPIN AQ [Suspect]
     Indication: RENAL FAILURE CHRONIC
     Route: 058
  2. COLACE [Concomitant]
     Route: 048
     Dates: start: 20140102
  3. MIRALAX [Concomitant]
     Indication: CONSTIPATION
     Dosage: CAPFUL DAILY
     Route: 048
  4. SEVELAMER [Concomitant]
     Dosage: 4 TABLETS WITH MEAL OR SNACKS
     Route: 048
     Dates: start: 20130911
  5. CALCITRIOL [Concomitant]
     Dosage: DAILY
     Route: 048
     Dates: start: 20131031
  6. CALCITRIOL [Concomitant]
     Dosage: DAILY
     Route: 048
     Dates: start: 20131031
  7. CHOLECALCIFEROL [Concomitant]
     Dosage: DAILY
     Route: 048
     Dates: start: 20131203
  8. MIDODRINE [Concomitant]
     Dosage: 2 TABS EVERY MORNING AND 1 EVERY EVENING.
     Route: 048

REACTIONS (3)
  - Arteriovenous fistula site complication [Recovered/Resolved]
  - Nausea [Unknown]
  - Pain [Unknown]
